FAERS Safety Report 23257490 (Version 1)
Quarter: 2023Q4

REPORT INFORMATION
  Report Type: Report from Study
  Country: FR (occurrence: FR)
  Receive Date: 20231204
  Receipt Date: 20231204
  Transmission Date: 20240110
  Serious: Yes (Hospitalization, Other)
  Sender: FDA-Public Use
  Company Number: FR-ASTELLAS-2022US045139

PATIENT
  Age: 80 Year
  Sex: Male

DRUGS (20)
  1. ENFORTUMAB VEDOTIN [Suspect]
     Active Substance: ENFORTUMAB VEDOTIN
     Indication: Bladder cancer
     Dosage: 1.25 MG/KG, CYCLIC (ON DAY 1 AND DAY 8 OF EACH 3-WEEK CYCLE)
     Route: 042
     Dates: start: 20221014, end: 20221014
  2. ENFORTUMAB VEDOTIN [Suspect]
     Active Substance: ENFORTUMAB VEDOTIN
     Dosage: 1.25 MG/KG, CYCLIC (ON DAY 1 AND DAY 8 OF EACH 3-WEEK CYCLE)
     Route: 042
     Dates: start: 20221021, end: 20221021
  3. ENFORTUMAB VEDOTIN [Suspect]
     Active Substance: ENFORTUMAB VEDOTIN
     Dosage: 1.25 MG/KG, CYCLIC (ON DAY 1 AND DAY 8 OF EACH 3-WEEK CYCLE)
     Route: 042
     Dates: start: 20221104, end: 20221104
  4. ENFORTUMAB VEDOTIN [Suspect]
     Active Substance: ENFORTUMAB VEDOTIN
     Dosage: 1.25 MG/KG, CYCLIC (ON DAY 1 AND DAY 8 OF EACH 3-WEEK CYCLE)
     Route: 042
     Dates: start: 20221109, end: 20221109
  5. DURVALUMAB [Suspect]
     Active Substance: DURVALUMAB
     Indication: Bladder cancer
     Route: 042
     Dates: start: 20221014, end: 20221014
  6. DURVALUMAB [Suspect]
     Active Substance: DURVALUMAB
     Route: 042
     Dates: start: 20221104, end: 20221104
  7. TREMELIMUMAB [Suspect]
     Active Substance: TREMELIMUMAB
     Indication: Bladder cancer
     Dosage: 75 MG, CYCLIC (ON CYCLE 1 DAY 1 AND CYCLE 2 DAY 8)
     Route: 042
     Dates: start: 20221014, end: 20221014
  8. TREMELIMUMAB [Suspect]
     Active Substance: TREMELIMUMAB
     Dosage: 75 MG, CYCLIC (ON CYCLE 1 DAY 1 AND CYCLE 2 DAY 8)
     Route: 042
     Dates: start: 20221109, end: 20221109
  9. CHOLECALCIFEROL [Concomitant]
     Active Substance: CHOLECALCIFEROL
     Indication: Vitamin supplementation
     Route: 048
     Dates: start: 20220927
  10. APREPITANT [Concomitant]
     Active Substance: APREPITANT
     Indication: Premedication
     Dosage: 125 MG BEFORE CHEMOTHERAPY
     Route: 048
     Dates: start: 20221014
  11. APREPITANT [Concomitant]
     Active Substance: APREPITANT
     Dosage: 80 MG, OTHER (80 MG FOR 2 DAYS THE FOLLOWING DAY AFTER CHEMOTHERAPY)
     Route: 048
     Dates: start: 20221014
  12. GRANISETRON [Concomitant]
     Active Substance: GRANISETRON
     Indication: Premedication
     Dosage: 2 MG BEFORE CHEMOTHERAPY
     Route: 048
     Dates: start: 20221014
  13. PREDNISOLONE [Concomitant]
     Active Substance: PREDNISOLONE
     Indication: Premedication
     Dosage: 60 MG BEFORE CHEMOTHERAPY
     Route: 048
     Dates: start: 20221014
  14. PREDNISOLONE [Concomitant]
     Active Substance: PREDNISOLONE
     Dosage: 60 MG, OTHER (60 MG FOR 2 DAYS THE FOLLOWING DAY AFTER CHEMOTHERAPY)
     Route: 048
     Dates: start: 20221014
  15. SODIUM BICARBONATE [Concomitant]
     Active Substance: SODIUM BICARBONATE
     Indication: Premedication
     Route: 002
     Dates: start: 20221014
  16. AUGMENTIN [Concomitant]
     Active Substance: AMOXICILLIN\CLAVULANATE POTASSIUM
     Indication: Inflammation
     Route: 042
     Dates: start: 20221125, end: 20221204
  17. Dexeryl [Concomitant]
     Indication: Erythema
     Dosage: 1 APPLICATION AS REQUIRED
     Route: 061
     Dates: start: 20221130, end: 20221205
  18. Dexeryl [Concomitant]
     Dosage: 1 APPLICATION AS REQUIRED
     Route: 061
     Dates: start: 20221213
  19. CETIRIZINE [Concomitant]
     Active Substance: CETIRIZINE HYDROCHLORIDE
     Indication: Pruritus
     Route: 048
     Dates: start: 20221106, end: 20221208
  20. DEXTROSE\POTASSIUM CHLORIDE\SODIUM CHLORIDE [Concomitant]
     Active Substance: DEXTROSE\POTASSIUM CHLORIDE\SODIUM CHLORIDE
     Indication: Dehydration
     Route: 042
     Dates: start: 20221129, end: 20221203

REACTIONS (1)
  - Adrenal insufficiency [Recovered/Resolved]

NARRATIVE: CASE EVENT DATE: 20221213
